FAERS Safety Report 6678603-3 (Version None)
Quarter: 2010Q2

REPORT INFORMATION
  Report Type: 
  Country: None (occurrence: None)
  Receive Date: 20100412
  Receipt Date: 20100412
  Transmission Date: 20101027
  Serious: Yes (Hospitalization)
  Sender: FDA-Public Use
  Company Number: None

PATIENT
  Age: 41 Year
  Sex: Male
  Weight: 100 kg

DRUGS (2)
  1. CLONIDINE [Suspect]
     Indication: SUICIDE ATTEMPT
     Dosage: PO X 1
     Route: 048
     Dates: start: 20091206
  2. PHENYTOIN [Suspect]
     Indication: SUICIDE ATTEMPT
     Dosage: PO X 1
     Route: 048
     Dates: start: 20091206

REACTIONS (1)
  - SUICIDE ATTEMPT [None]
